FAERS Safety Report 18228991 (Version 2)
Quarter: 2020Q4

REPORT INFORMATION
  Report Type: Report from Study
  Country: NL (occurrence: NL)
  Receive Date: 20200903
  Receipt Date: 20201007
  Transmission Date: 20210113
  Serious: Yes (Hospitalization, Other)
  Sender: FDA-Public Use
  Company Number: NL-AMGEN-NLDSL2020131593

PATIENT
  Age: 84 Year
  Sex: Male

DRUGS (6)
  1. CALCIUM CARBONATE;COLECALCIFEROL [Concomitant]
     Active Substance: CALCIUM CARBONATE\CHOLECALCIFEROL
     Dosage: 2,5G/880IE (1000MG CA), QD
  2. XGEVA [Suspect]
     Active Substance: DENOSUMAB
     Indication: PROPHYLAXIS
     Dosage: 120 MILLIGRAM, Q4WK (70 MG/ML FLACON 1.7 ML)
     Route: 058
     Dates: start: 2017
  3. OXYCODON [Concomitant]
     Active Substance: OXYCODONE
     Dosage: 10 MILLIGRAM, AS NECESSARY (6XD 1T)
  4. GOSERELINE [Concomitant]
     Active Substance: GOSERELIN
     Dosage: WWSP 10,8MG 1X PER 3M 1INJ
  5. BECLOMETASONE;FORMOTEROL [Concomitant]
     Active Substance: BECLOMETHASONE\FORMOTEROL
     Dosage: 100/6UG/DO 120DO I 2XD 2 INH
  6. DUROGESIC [Concomitant]
     Active Substance: FENTANYL
     Dosage: 50UG/HR  1X PER 3D 1PLASTER

REACTIONS (3)
  - Loss of consciousness [Not Recovered/Not Resolved]
  - Urosepsis [Unknown]
  - Memory impairment [Not Recovered/Not Resolved]
